FAERS Safety Report 8139004-4 (Version None)
Quarter: 2012Q1

REPORT INFORMATION
  Report Type: 
  Country: None (occurrence: None)
  Receive Date: 20120215
  Receipt Date: 20110601
  Transmission Date: 20120608
  Serious: Yes (Disabling)
  Sender: FDA-Public Use
  Company Number: GB-WATSON-2011-08125

PATIENT
  Age: 2 Year
  Sex: Male

DRUGS (5)
  1. CLOBAZAM [Concomitant]
     Indication: PRODUCT USED FOR UNKNOWN INDICATION
     Dosage: UNKNOWN
  2. AMOXICILLIN AND CLAVULANATE POTASSIUM [Suspect]
     Indication: PRODUCT USED FOR UNKNOWN INDICATION
     Dosage: UNKNOWN
  3. STIRIPENTOL [Suspect]
     Indication: PRODUCT USED FOR UNKNOWN INDICATION
     Dosage: UNKNOWN
  4. GENTAMICIN SULFATE [Suspect]
     Indication: PRODUCT USED FOR UNKNOWN INDICATION
     Dosage: UNKNOWN
  5. VALPROATE SODIUM [Suspect]
     Indication: CONVULSION
     Dosage: UNKNOWN
     Route: 065

REACTIONS (4)
  - CEREBELLAR ATROPHY [None]
  - ENCEPHALOPATHY [None]
  - FEEDING DISORDER [None]
  - MOTOR DEVELOPMENTAL DELAY [None]
